FAERS Safety Report 21365986 (Version 1)
Quarter: 2022Q3

REPORT INFORMATION
  Report Type: Spontaneous
  Country: CN (occurrence: CN)
  Receive Date: 20220922
  Receipt Date: 20220922
  Transmission Date: 20221027
  Serious: Yes (Hospitalization, Other)
  Sender: FDA-Public Use
  Company Number: CN-009507513-2209CHN007473

PATIENT
  Age: 67 Year
  Sex: Male
  Weight: 52 kg

DRUGS (6)
  1. KEYTRUDA [Suspect]
     Active Substance: PEMBROLIZUMAB
     Indication: Squamous cell carcinoma of lung
     Dosage: 200 MG, ONCE (1 TIME/DAY, DAY1)
     Route: 041
     Dates: start: 20220719, end: 20220719
  2. CARBOPLATIN [Suspect]
     Active Substance: CARBOPLATIN
     Indication: Squamous cell carcinoma of lung
     Dosage: 450 MG, ONCE (1 TIME/DAY, D1)
     Route: 041
     Dates: start: 20220719, end: 20220719
  3. PACLITAXEL [Suspect]
     Active Substance: PACLITAXEL
     Indication: Squamous cell carcinoma of lung
     Dosage: 150 MG, ONCE (1 TIME/DAY, D1)
     Route: 041
     Dates: start: 20220719, end: 20220719
  4. SODIUM CHLORIDE [Concomitant]
     Active Substance: SODIUM CHLORIDE
     Indication: Vehicle solution use
     Dosage: 100 ML, ONCE (1 TIME/DAY, DAY1)
     Route: 041
     Dates: start: 20220719, end: 20220719
  5. SODIUM CHLORIDE [Concomitant]
     Active Substance: SODIUM CHLORIDE
     Dosage: 100 ML, ONCE (1 TIME/DAY, D1)
     Route: 041
     Dates: start: 20220719, end: 20220719
  6. DEXTROSE [Concomitant]
     Active Substance: DEXTROSE
     Indication: Vehicle solution use
     Dosage: 500 ML, ONCE (1 TIME/DAY, D1)
     Route: 041
     Dates: start: 20220719, end: 20220719

REACTIONS (1)
  - Myelosuppression [Recovering/Resolving]

NARRATIVE: CASE EVENT DATE: 20220727
